FAERS Safety Report 5771987-X (Version None)
Quarter: 2008Q2

REPORT INFORMATION
  Report Type: 
  Country: None (occurrence: None)
  Receive Date: 20080601
  Receipt Date: 20080308
  Transmission Date: 20081010
  Serious: No
  Sender: FDA-Public Use
  Company Number: US200803001916

PATIENT
  Age: 55 Year
  Sex: Female
  Weight: 99.8 kg

DRUGS (4)
  1. BYETTA [Suspect]
     Indication: TYPE 2 DIABETES MELLITUS
     Dosage: 5 UG, 2/D, SUBCUTANEOUS
     Route: 058
     Dates: start: 20080305
  2. GLIPIZIDE [Concomitant]
  3. METFORMIN HCL [Concomitant]
  4. ACTOS /USA/ (PIOGLITAZONE HYDROCHLORIDE) [Concomitant]

REACTIONS (2)
  - BLOOD GLUCOSE INCREASED [None]
  - NAUSEA [None]
